FAERS Safety Report 25225222 (Version 1)
Quarter: 2025Q2

REPORT INFORMATION
  Report Type: Spontaneous
  Country: US (occurrence: US)
  Receive Date: 20250422
  Receipt Date: 20250422
  Transmission Date: 20250716
  Serious: Yes (Other)
  Sender: PFIZER
  Company Number: US-PFIZER INC-202500082450

PATIENT
  Age: 24 Year
  Sex: Female
  Weight: 77.11 kg

DRUGS (3)
  1. CIBINQO [Suspect]
     Active Substance: ABROCITINIB
     Indication: Dermatitis
     Dates: start: 202306
  2. CIBINQO [Suspect]
     Active Substance: ABROCITINIB
     Indication: Eczema
  3. ADDERALL [Concomitant]
     Active Substance: AMPHETAMINE ASPARTATE\AMPHETAMINE SULFATE\DEXTROAMPHETAMINE SACCHARATE\DEXTROAMPHETAMINE SULFATE
     Indication: Attention deficit hyperactivity disorder

REACTIONS (5)
  - Glaucoma [Unknown]
  - Eye disorder [Unknown]
  - Visual impairment [Unknown]
  - Optic nerve disorder [Unknown]
  - Intraocular pressure increased [Unknown]
